FAERS Safety Report 4647365-3 (Version None)
Quarter: 2005Q2

REPORT INFORMATION
  Report Type: 
  Country: None (occurrence: None)
  Receive Date: 20050427
  Receipt Date: 20050427
  Transmission Date: 20051028
  Serious: Yes (Hospitalization)
  Sender: FDA-Public Use
  Company Number: None

PATIENT
  Age: 58 Year
  Sex: Female
  Weight: 81.6475 kg

DRUGS (4)
  1. LORATADINE [Suspect]
     Indication: NASAL CONGESTION
     Dosage: 10MG QD ORAL
     Route: 048
     Dates: start: 20050301, end: 20050303
  2. ATENOLOL AND CHLORTHALIDONE [Concomitant]
  3. VYTORIN [Concomitant]
  4. PEPCID [Concomitant]

REACTIONS (4)
  - EXTRASYSTOLES [None]
  - NAUSEA [None]
  - SYNCOPE [None]
  - VENTRICULAR EXTRASYSTOLES [None]
